FAERS Safety Report 19735373 (Version 1)
Quarter: 2021Q3

REPORT INFORMATION
  Report Type: Spontaneous
  Country: US (occurrence: US)
  Receive Date: 20210824
  Receipt Date: 20210824
  Transmission Date: 20211014
  Serious: No
  Sender: FDA-Public Use
  Company Number: US-OREXO US, INC.-ORE202106-000033

PATIENT
  Sex: Male

DRUGS (4)
  1. ZUBSOLV [Suspect]
     Active Substance: BUPRENORPHINE HYDROCHLORIDE\NALOXONE HYDROCHLORIDE
     Dosage: CONTINUED TO TITRATE OF ZUBSOLV
  2. ZUBSOLV [Suspect]
     Active Substance: BUPRENORPHINE HYDROCHLORIDE\NALOXONE HYDROCHLORIDE
     Dosage: TITRATED DOWN TO NEXT STRENGTH AND STARTED TAKING ONLY1 TABLET OF LOWER DOSE
  3. ZUBSOLV [Suspect]
     Active Substance: BUPRENORPHINE HYDROCHLORIDE\NALOXONE HYDROCHLORIDE
     Dosage: 2 TABLETS OF LOWER DOSAGE
  4. ZUBSOLV [Suspect]
     Active Substance: BUPRENORPHINE HYDROCHLORIDE\NALOXONE HYDROCHLORIDE
     Indication: PAIN
     Dosage: TWO TABLETS DAILY

REACTIONS (4)
  - Drug ineffective [Unknown]
  - Drug withdrawal syndrome [Recovering/Resolving]
  - Drug titration error [Unknown]
  - Product use in unapproved indication [Unknown]
